FAERS Safety Report 10126573 (Version 2)
Quarter: 2015Q1

REPORT INFORMATION
  Report Type: Other
  Country: US (occurrence: US)
  Receive Date: 20140427
  Receipt Date: 20150129
  Transmission Date: 20150720
  Serious: Yes (Death, Hospitalization, Other)
  Sender: FDA-Public Use
  Company Number: US-GSKPPD-2014GSK028082

PATIENT
  Age: 57 Year
  Sex: Female
  Weight: 149.28 kg

DRUGS (4)
  1. LASIX [Concomitant]
     Active Substance: FUROSEMIDE
  2. TOPROL XL [Concomitant]
     Active Substance: METOPROLOL SUCCINATE
  3. AVANDIA [Suspect]
     Active Substance: ROSIGLITAZONE MALEATE
     Indication: DIABETES MELLITUS
     Dosage: DATES OF AVANDIA USE COULD NOT BE CONFIRMED IN RECORDS REVIEWED.
     Route: 048
  4. DIOVAN [Concomitant]
     Active Substance: VALSARTAN

REACTIONS (3)
  - Myocardial infarction [Unknown]
  - Atrial fibrillation [Unknown]
  - Coronary artery disease [Fatal]

NARRATIVE: CASE EVENT DATE: 20070809
